FAERS Safety Report 6430750-7 (Version None)
Quarter: 2009Q4

REPORT INFORMATION
  Report Type: 
  Country: None (occurrence: None)
  Receive Date: 20091106
  Receipt Date: 20091028
  Transmission Date: 20100525
  Serious: Yes (Hospitalization)
  Sender: FDA-Public Use
  Company Number: JP-JNJFOC-20090905751

PATIENT
  Sex: Female

DRUGS (14)
  1. GOLIMUMAB [Suspect]
     Route: 058
     Dates: start: 20081113, end: 20090430
  2. GOLIMUMAB [Suspect]
     Route: 058
     Dates: start: 20081113, end: 20090430
  3. GOLIMUMAB [Suspect]
     Route: 058
     Dates: start: 20081113, end: 20090430
  4. GOLIMUMAB [Suspect]
     Route: 058
     Dates: start: 20081113, end: 20090430
  5. GOLIMUMAB [Suspect]
     Route: 058
     Dates: start: 20081113, end: 20090430
  6. GOLIMUMAB [Suspect]
     Route: 058
     Dates: start: 20081113, end: 20090430
  7. GOLIMUMAB [Suspect]
     Indication: RHEUMATOID ARTHRITIS
     Route: 058
     Dates: start: 20081113, end: 20090430
  8. PREDNISOLONE [Concomitant]
     Route: 048
  9. BONALON [Concomitant]
     Route: 048
  10. GASTER D [Concomitant]
     Route: 048
  11. LOXOPROFEN [Concomitant]
     Route: 048
  12. MOHRUS [Concomitant]
     Route: 061
  13. ASASION [Concomitant]
     Route: 048
  14. ARAVA [Concomitant]
     Route: 048

REACTIONS (1)
  - INTRACRANIAL ANEURYSM [None]
